FAERS Safety Report 4970271-1 (Version None)
Quarter: 2006Q1

REPORT INFORMATION
  Report Type: 
  Country: None (occurrence: None)
  Receive Date: 20060330
  Receipt Date: 20060314
  Transmission Date: 20060701
  Serious: Yes (Life-Threatening)
  Sender: FDA-Public Use
  Company Number: THYM-10915

PATIENT
  Age: 11 Year
  Sex: Female

DRUGS (18)
  1. THYMOGLOBULIN [Suspect]
     Indication: PROPHYLAXIS AGAINST TRANSPLANT REJECTION
     Dosage: 2.5 MG/KG QD IV
     Route: 042
     Dates: start: 20060303, end: 20060307
  2. ALLOPURINOL [Concomitant]
  3. OMEPRAZOLE [Concomitant]
  4. SODIUM BICARBONATE [Concomitant]
  5. ONDANSETRON [Concomitant]
  6. COTRIM [Concomitant]
  7. VITAMINE KI DELAGRANGE [Concomitant]
  8. FUROSEMIDA [Concomitant]
  9. CLONAZEPAN [Concomitant]
  10. CASAPOFUNGINA [Concomitant]
  11. CEFTRIAXONE [Concomitant]
  12. ONCO TIOTEPA [Concomitant]
  13. CICLOFOSFAMIDA [Concomitant]
  14. HYDROCORTISONE [Concomitant]
  15. CLEMASTINE [Concomitant]
  16. OXYGEN THERAPY [Concomitant]
  17. PARACETAMOL [Concomitant]
  18. PETIDIN [Concomitant]

REACTIONS (2)
  - PYREXIA [None]
  - RESPIRATORY FAILURE [None]
